FAERS Safety Report 25288410 (Version 1)
Quarter: 2025Q2

REPORT INFORMATION
  Report Type: Spontaneous
  Country: FR (occurrence: FR)
  Receive Date: 20250509
  Receipt Date: 20250509
  Transmission Date: 20250716
  Serious: Yes (Congenital Anomaly, Other)
  Sender: GLAXOSMITHKLINE
  Company Number: None

PATIENT

DRUGS (1)
  1. SUMATRIPTAN [Suspect]
     Active Substance: SUMATRIPTAN
     Indication: Ophthalmic migraine
     Dosage: 100 MG, 4W
     Route: 064
     Dates: start: 2022, end: 2022

REACTIONS (2)
  - Congenital Horner^s syndrome [Not Recovered/Not Resolved]
  - Foetal exposure during pregnancy [Unknown]
